FAERS Safety Report 9121178 (Version 1)
Quarter: 2013Q1

REPORT INFORMATION
  Report Type: Spontaneous
  Country: US (occurrence: US)
  Receive Date: 20130225
  Receipt Date: 20130225
  Transmission Date: 20140127
  Serious: Yes (Other)
  Sender: FDA-Public Use
  Company Number: US-GILEAD-2013-0069758

PATIENT
  Sex: Female

DRUGS (19)
  1. RANEXA [Suspect]
     Indication: ANGINA PECTORIS
     Dosage: 500 MG, BID
  2. ALENDRONATE [Concomitant]
     Dosage: UNK
  3. ALLEGRA [Concomitant]
     Dosage: UNK
  4. ASPIRIN [Concomitant]
     Dosage: UNK
  5. CORICIDIN                          /01142901/ [Concomitant]
     Dosage: UNK
  6. FISH OIL [Concomitant]
  7. IRON [Concomitant]
     Dosage: UNK
  8. NEXIUM                             /01479302/ [Concomitant]
     Dosage: UNK
  9. FLUTICASONE [Concomitant]
     Dosage: UNK
  10. ISOSORBIDE MONONITRATE [Concomitant]
     Dosage: UNK
  11. LEXAPRO [Concomitant]
     Dosage: UNK
  12. LIPITOR [Concomitant]
     Dosage: UNK
  13. OMEPRAZOLE [Concomitant]
     Dosage: UNK
  14. PREDNISONE [Concomitant]
     Dosage: UNK
  15. SINGULAIR [Concomitant]
     Dosage: UNK
  16. SULFACETAMIDE SODIUM [Concomitant]
     Dosage: UNK
  17. SYNTHROID [Concomitant]
     Dosage: UNK
  18. TRAMADOL [Concomitant]
     Dosage: UNK
  19. QVAR [Concomitant]
     Dosage: UNK

REACTIONS (6)
  - Chest pain [Unknown]
  - Medication error [Unknown]
  - Overdose [Unknown]
  - Hypertension [Unknown]
  - Insomnia [Unknown]
  - Asthenia [Unknown]
